FAERS Safety Report 4852438-6 (Version None)
Quarter: 2005Q4

REPORT INFORMATION
  Report Type: 
  Country: None (occurrence: None)
  Receive Date: 20051130
  Receipt Date: 20050823
  Transmission Date: 20060501
  Serious: No
  Sender: FDA-Public Use
  Company Number: WAES 0506USA03788

PATIENT
  Age: 59 Year
  Sex: Female

DRUGS (2)
  1. ZETIA [Suspect]
     Indication: BLOOD CHOLESTEROL INCREASED
     Dosage: 10 MG/DAILY/PO
     Route: 048
     Dates: start: 20050501, end: 20050601
  2. (THERAPY UNSPECIFIED) [Concomitant]

REACTIONS (3)
  - HEADACHE [None]
  - MALAISE [None]
  - MEMORY IMPAIRMENT [None]
